FAERS Safety Report 11251841 (Version 1)
Quarter: 2015Q3

REPORT INFORMATION
  Report Type: Spontaneous
  Country: US (occurrence: US)
  Receive Date: 20150708
  Receipt Date: 20150708
  Transmission Date: 20151125
  Serious: No
  Sender: FDA-Public Use
  Company Number: US-ELI_LILLY_AND_COMPANY-US201206009682

PATIENT
  Age: 69 Year
  Sex: Female

DRUGS (2)
  1. ALIMTA [Suspect]
     Active Substance: PEMETREXED DISODIUM
     Indication: LUNG NEOPLASM MALIGNANT
     Dosage: UNK
  2. TARCEVA [Concomitant]
     Active Substance: ERLOTINIB HYDROCHLORIDE
     Indication: LUNG NEOPLASM MALIGNANT
     Dosage: 150 MG, QD
     Route: 048
     Dates: start: 20120404

REACTIONS (3)
  - Hyperhidrosis [Unknown]
  - Skin discolouration [Unknown]
  - Tremor [Unknown]

NARRATIVE: CASE EVENT DATE: 20120418
